FAERS Safety Report 7069817-1 (Version None)
Quarter: 2010Q4

REPORT INFORMATION
  Report Type: 
  Country: None (occurrence: None)
  Receive Date: 20101028
  Receipt Date: 20100521
  Transmission Date: 20110411
  Serious: No
  Sender: FDA-Public Use
  Company Number: US-WYE-H15393210

PATIENT
  Age: 54 Year
  Sex: Female

DRUGS (1)
  1. EFFEXOR [Suspect]
     Indication: DEPRESSION
     Dosage: DISCONTINUED WHEN PATIENT RAN OUT, THEN WAS RESUMED ON 21-MAY-2010

REACTIONS (2)
  - DRUG WITHDRAWAL SYNDROME [None]
  - VOMITING [None]
